FAERS Safety Report 18373989 (Version 2)
Quarter: 2020Q4

REPORT INFORMATION
  Report Type: Spontaneous
  Country: US (occurrence: US)
  Receive Date: 20201012
  Receipt Date: 20201102
  Transmission Date: 20210114
  Serious: No
  Sender: FDA-Public Use
  Company Number: US-SA-2020SA282286

PATIENT

DRUGS (1)
  1. DUPIXENT [Suspect]
     Active Substance: DUPILUMAB
     Indication: ECZEMA
     Dosage: 200 MG, QOW
     Route: 058
     Dates: start: 20200728, end: 20201021

REACTIONS (4)
  - Skin disorder [Unknown]
  - Product dose omission issue [Unknown]
  - Skin exfoliation [Unknown]
  - Product use issue [Unknown]

NARRATIVE: CASE EVENT DATE: 2020
